FAERS Safety Report 5395766-0 (Version None)
Quarter: 2007Q3

REPORT INFORMATION
  Report Type: 
  Country: None (occurrence: None)
  Receive Date: 20070724
  Receipt Date: 20070712
  Transmission Date: 20080115
  Serious: Yes (Hospitalization, Other)
  Sender: FDA-Public Use
  Company Number: US-PFIZER INC-2006106327

PATIENT
  Sex: Male
  Weight: 105.2 kg

DRUGS (4)
  1. CELEBREX [Suspect]
     Indication: PAIN
  2. VIOXX [Suspect]
     Indication: RHEUMATOID ARTHRITIS
     Dates: start: 19990601
  3. ACCUPRIL [Concomitant]
     Dates: start: 19990101, end: 20000101
  4. VALSARTAN [Concomitant]
     Dates: start: 19990101, end: 20000101

REACTIONS (2)
  - CARDIOVASCULAR DISORDER [None]
  - MYOCARDIAL INFARCTION [None]
